FAERS Safety Report 24738753 (Version 2)
Quarter: 2024Q4

REPORT INFORMATION
  Report Type: Report from Study
  Country: US (occurrence: US)
  Receive Date: 20241216
  Receipt Date: 20241224
  Transmission Date: 20250114
  Serious: No
  Sender: IPSEN BIOPHARMACEUTICALS, INC.
  Company Number: US-IPSEN Group, Research and Development-2024-25240

PATIENT
  Age: 36 Year
  Sex: Male

DRUGS (3)
  1. BYLVAY [Suspect]
     Active Substance: ODEVIXIBAT
     Indication: Liver function test abnormal
     Dosage: TWO 1200 MCG ORAL CAPSULES BY MOUTH ONCE DAILY WITH A MEAL
     Route: 048
     Dates: start: 20211215
  2. BYLVAY [Suspect]
     Active Substance: ODEVIXIBAT
     Indication: Off label use
  3. BYLVAY [Suspect]
     Active Substance: ODEVIXIBAT
     Indication: Progressive familial intrahepatic cholestasis

REACTIONS (2)
  - Pruritus [Unknown]
  - Off label use [Unknown]
